FAERS Safety Report 15523958 (Version 2)
Quarter: 2019Q1

REPORT INFORMATION
  Report Type: Spontaneous
  Country: US (occurrence: US)
  Receive Date: 20181019
  Receipt Date: 20190227
  Transmission Date: 20190417
  Serious: Yes (Other)
  Sender: FDA-Public Use
  Company Number: US-SA-2018SA289615

PATIENT
  Age: 69 Year

DRUGS (4)
  1. TAXOTERE [Suspect]
     Active Substance: DOCETAXEL
     Dosage: UNK UNK, UNK
     Route: 042
     Dates: start: 20081104, end: 20081104
  2. DEXAMETHASONE. [Concomitant]
     Active Substance: DEXAMETHASONE
     Dosage: 10 MG, UNK
     Dates: start: 20081125
  3. DOLASETRON [Concomitant]
     Active Substance: DOLASETRON
     Dosage: 100 MG, UNK
     Route: 042
     Dates: start: 20090129
  4. TAXOTERE [Suspect]
     Active Substance: DOCETAXEL
     Dosage: UNK
     Route: 042
     Dates: start: 20090219, end: 20090219

REACTIONS (1)
  - Alopecia [Not Recovered/Not Resolved]
